FAERS Safety Report 22650186 (Version 1)
Quarter: 2023Q2

REPORT INFORMATION
  Report Type: Report from Study
  Country: US (occurrence: US)
  Receive Date: 20230628
  Receipt Date: 20230628
  Transmission Date: 20230721
  Serious: Yes (Hospitalization)
  Sender: FDA-Public Use
  Company Number: US-ABBVIE-5182968

PATIENT
  Sex: Female

DRUGS (1)
  1. VENCLEXTA [Suspect]
     Active Substance: VENETOCLAX
     Indication: Acute myeloid leukaemia
     Route: 048
     Dates: start: 202305, end: 202305

REACTIONS (8)
  - Pneumonia fungal [Unknown]
  - Hospitalisation [Recovered/Resolved]
  - Constipation [Unknown]
  - Cough [Unknown]
  - Rash erythematous [Unknown]
  - Musculoskeletal pain [Unknown]
  - Hypertension [Not Recovered/Not Resolved]
  - White blood cell count decreased [Unknown]

NARRATIVE: CASE EVENT DATE: 20230101
